FAERS Safety Report 6236266-5 (Version None)
Quarter: 2009Q2

REPORT INFORMATION
  Report Type: 
  Country: None (occurrence: None)
  Receive Date: 20090617
  Receipt Date: 20080331
  Transmission Date: 20091009
  Serious: No
  Sender: FDA-Public Use
  Company Number: 273640

PATIENT
  Age: 88 Year
  Sex: Female

DRUGS (6)
  1. LEVEMIR [Suspect]
     Indication: INSULIN-REQUIRING TYPE 2 DIABETES MELLITUS
     Dosage: 20 LU, SUBCUTANEOUS
     Route: 058
     Dates: start: 20080315, end: 20080327
  2. LEVEMIR [Suspect]
     Indication: INSULIN-REQUIRING TYPE 2 DIABETES MELLITUS
     Dosage: 20 LU, SUBCUTANEOUS
     Route: 058
     Dates: start: 20080320
  3. AMARYL [Concomitant]
  4. NEXIUM [Concomitant]
  5. ALLEGRA [Concomitant]
  6. OS-CAL (CALCIUM CARBONATE) [Concomitant]

REACTIONS (1)
  - PRURITUS [None]
